FAERS Safety Report 7009534-7 (Version None)
Quarter: 2010Q3

REPORT INFORMATION
  Report Type: 
  Country: None (occurrence: None)
  Receive Date: 20100908
  Receipt Date: 20100614
  Transmission Date: 20110219
  Serious: No
  Sender: FDA-Public Use
  Company Number: 2010US000035

PATIENT
  Age: 72 Year
  Sex: Male
  Weight: 65 kg

DRUGS (12)
  1. ENTEREG [Suspect]
     Indication: POSTOPERATIVE ILEUS
     Dosage: 12 MG BID PO
     Route: 048
     Dates: start: 20100506, end: 20100508
  2. CEFIXITIN [Concomitant]
  3. DIPRIVAN [Concomitant]
  4. DROPERIDOL [Concomitant]
  5. TORADOL [Concomitant]
  6. VERSED [Concomitant]
  7. MORPHINE [Concomitant]
  8. NEOMYCIN SULFATE/POLYMYSIN B SULFATE [Concomitant]
  9. TRIAZOLAM [Concomitant]
  10. ZEMURON [Concomitant]
  11. LACTATED RINGER'S [Concomitant]
  12. 1/3NS WITH POTASSIUM [Concomitant]

REACTIONS (2)
  - NAUSEA [None]
  - VOMITING [None]
